FAERS Safety Report 5631762-3 (Version None)
Quarter: 2008Q1

REPORT INFORMATION
  Report Type: 
  Country: None (occurrence: None)
  Receive Date: 20080220
  Receipt Date: 20080208
  Transmission Date: 20080703
  Serious: Yes (Hospitalization, Other)
  Sender: FDA-Public Use
  Company Number: CA-JNJFOC-20070107424

PATIENT
  Age: 54 Year
  Sex: Male
  Weight: 70.7 kg

DRUGS (15)
  1. INFLIXIMAB [Suspect]
     Indication: HEPATITIS C
     Route: 042
  2. PEGYLATED INTERFERON [Suspect]
     Indication: HEPATITIS C
     Route: 058
  3. RIBAVIRIN [Suspect]
     Indication: HEPATITIS C
     Route: 048
  4. VITAMIN CAP [Concomitant]
     Indication: MEDICAL DIET
     Dosage: UNKNOWN START DATE
     Route: 048
  5. ADVIL [Concomitant]
     Indication: HEADACHE
     Route: 048
  6. ADVIL [Concomitant]
     Indication: PYREXIA
     Dosage: DOSE: 1 TO 2 TABLETS ORAL PRN
     Route: 048
  7. CALCIUM CARBONATE [Concomitant]
     Indication: MEDICAL DIET
     Dosage: UNKNOWN START DATE
     Route: 048
  8. TRAZODONE HCL [Concomitant]
     Indication: INSOMNIA
     Route: 048
  9. NYSTATIN [Concomitant]
     Indication: ORAL CANDIDIASIS
     Route: 048
  10. ACETAMINOPHEN [Concomitant]
     Indication: PYREXIA
     Route: 048
  11. ACETAMINOPHEN [Concomitant]
     Indication: INFLUENZA LIKE ILLNESS
     Dosage: 325 - 650 MG, ORAL AS NECESSARY
     Route: 048
  12. ASCORBIC ACID [Concomitant]
     Indication: MEDICAL DIET
     Dosage: UNKNOWN START DATE
     Route: 048
  13. FLONASE [Concomitant]
     Indication: SEASONAL ALLERGY
     Dosage: 1 -2 PUFFS AS NECESSARY
     Route: 055
  14. ALBUTEROL [Concomitant]
     Indication: WHEEZING
     Dosage: 1 - 2 PUFFS EVERY 6 HOURS AS NECESSARY
     Route: 055
  15. NASONEX [Concomitant]
     Indication: NASAL CONGESTION
     Route: 055

REACTIONS (4)
  - CONFUSIONAL STATE [None]
  - CONSTIPATION [None]
  - PSYCHOTIC DISORDER [None]
  - TACHYCARDIA [None]
